FAERS Safety Report 26075446 (Version 1)
Quarter: 2025Q4

REPORT INFORMATION
  Report Type: Spontaneous
  Country: US (occurrence: US)
  Receive Date: 20251121
  Receipt Date: 20251121
  Transmission Date: 20260118
  Serious: No
  Sender: VERASTEM
  Company Number: US-VERASTEM-251107US-AFCPK-00801

PATIENT

DRUGS (1)
  1. AVMAPKI FAKZYNJA CO-PACK [Suspect]
     Active Substance: AVUTOMETINIB POTASSIUM\DEFACTINIB HYDROCHLORIDE
     Indication: Ovarian cancer
     Dosage: AVMAPKI 3.2 ONCE DAILY ON DAYS 1 AND 4 FOR THE FIRST 3 WEEKS THEN OFF FOR 1 WEEK/ FAKZYNJA 200MG TWI
     Route: 048
     Dates: start: 20250917

REACTIONS (3)
  - Skin irritation [Unknown]
  - Vision blurred [Recovered/Resolved]
  - Abdominal discomfort [Unknown]
